FAERS Safety Report 8488517-4 (Version None)
Quarter: 2012Q3

REPORT INFORMATION
  Report Type: 
  Country: None (occurrence: None)
  Receive Date: 20120705
  Receipt Date: 20120702
  Transmission Date: 20120928
  Serious: Yes (Life-Threatening, Hospitalization, Disabling, Other)
  Sender: FDA-Public Use
  Company Number: IL-B.I. PHARMACEUTICALS,INC./RIDGEFIELD-2012-AP-00486RI

PATIENT
  Age: 75 Year
  Sex: Female
  Weight: 79 kg

DRUGS (15)
  1. CITALOPRAM HYDROBROMIDE [Concomitant]
     Indication: DEPRESSION
     Dosage: 40 MG
     Dates: start: 20111213
  2. SIMVASTATIN [Concomitant]
     Indication: HYPERLIPIDAEMIA
     Dosage: 40 MG
     Dates: start: 20101006, end: 20120511
  3. METHOTREXATE [Concomitant]
     Indication: RHEUMATOID ARTHRITIS
     Dosage: 10 MG
     Dates: start: 20110619, end: 20120511
  4. ALLOPURINOL [Concomitant]
     Indication: HYPERURICAEMIA
     Dosage: 300 MG
     Dates: start: 20101006
  5. TRIBEMIN (BETRIVIT) [Concomitant]
     Dates: start: 20081215
  6. FOLIC ACID [Concomitant]
     Indication: SUPPLEMENTATION THERAPY
     Dates: start: 20080601
  7. CILAZAPRIL/HYDROCHLOROTHIAZIDE [Concomitant]
     Indication: HYPERTENSION
     Dosage: 5 MG
     Dates: start: 20080601, end: 20120511
  8. ZOPICLONE [Concomitant]
     Indication: INSOMNIA
     Dosage: 7.5 MG
     Dates: start: 20120302, end: 20120411
  9. ROWATINEX [Concomitant]
     Indication: URINARY TRACT INFECTION
     Dates: start: 20070702, end: 20120511
  10. PRADAXA [Suspect]
     Dosage: 300 MG
     Route: 048
     Dates: start: 20120417, end: 20120502
  11. ALFACALCIDIOL [Concomitant]
     Indication: RENAL FAILURE CHRONIC
     Dosage: 1 MCG
     Dates: start: 20101005
  12. ACTONEL [Concomitant]
     Indication: OSTEOPENIA
     Dates: start: 20110428, end: 20120511
  13. CALCIUM CITRATE+VIT D [Concomitant]
     Indication: OSTEOPENIA
     Dates: start: 20100702
  14. COUMADIN [Suspect]
  15. FAMOTIDINE [Concomitant]
     Dosage: 40 MG
     Dates: start: 20040919

REACTIONS (4)
  - CHOLECYSTITIS ACUTE [None]
  - PNEUMONIA [None]
  - PERICARDIAL HAEMORRHAGE [None]
  - CHEST PAIN [None]
